FAERS Safety Report 12476931 (Version 1)
Quarter: 2016Q2

REPORT INFORMATION
  Report Type: Spontaneous
  Country: PT (occurrence: PT)
  Receive Date: 20160617
  Receipt Date: 20160617
  Transmission Date: 20160815
  Serious: Yes (Other)
  Sender: FDA-Public Use
  Company Number: PT-NOVOPROD-487469

PATIENT
  Sex: Male
  Weight: 62 kg

DRUGS (8)
  1. LERCANIDIPINA                      /01366401/ [Concomitant]
     Route: 048
  2. VIAGRA [Concomitant]
     Active Substance: SILDENAFIL CITRATE
     Route: 048
  3. OLMETEC PLUS [Concomitant]
     Active Substance: HYDROCHLOROTHIAZIDE\OLMESARTAN MEDOXOMIL
     Route: 048
  4. CARVEDILOL TEVA [Suspect]
     Active Substance: CARVEDILOL
     Indication: HYPERTENSION
     Dosage: 12.5 MG, BID
     Route: 048
     Dates: start: 20150410, end: 20160329
  5. NOVOMIX 30 FLEXPEN [Suspect]
     Active Substance: INSULIN ASPART
     Indication: DIABETES MELLITUS
     Dosage: UNK
     Route: 058
  6. BRISOMAX [Concomitant]
     Active Substance: FLUTICASONE PROPIONATE\SALMETEROL XINAFOATE
     Route: 055
  7. TRIMETAZIDINA [Concomitant]
     Dosage: 20 MG, QD
     Route: 048
  8. SINVASTATINA [Concomitant]
     Active Substance: SIMVASTATIN
     Dosage: 20 MG, QD
     Route: 048

REACTIONS (5)
  - Drug interaction [Unknown]
  - Diarrhoea [Unknown]
  - Hypoglycaemia [Unknown]
  - Paraesthesia [Unknown]
  - Malaise [Unknown]
